FAERS Safety Report 9086151 (Version 1)
Quarter: 2013Q1

REPORT INFORMATION
  Report Type: Report from Study
  Country: US (occurrence: US)
  Receive Date: 20130130
  Receipt Date: 20130130
  Transmission Date: 20140127
  Serious: Yes (Other)
  Sender: FDA-Public Use
  Company Number: US-ABBOTT-12P-163-0988737-00

PATIENT
  Age: 62 Year
  Sex: Female

DRUGS (6)
  1. HUMIRA PEN [Suspect]
     Indication: RHEUMATOID ARTHRITIS
     Dates: start: 200902
  2. MAXALT [Concomitant]
     Indication: MIGRAINE
  3. METHOTREXATE [Concomitant]
     Indication: RHEUMATOID ARTHRITIS
  4. CARVEDILOL [Concomitant]
     Indication: HEART VALVE INCOMPETENCE
     Dosage: IN MORNING AND AT NIGHT
  5. BLOOD PRESSURE MEDICATION [Concomitant]
     Indication: BLOOD PRESSURE
     Dosage: DAILY
  6. HIGH CHOLESTEROL MEDICATION [Concomitant]
     Indication: BLOOD CHOLESTEROL INCREASED
     Dosage: DAILY

REACTIONS (14)
  - Back pain [Unknown]
  - Injection site pain [Unknown]
  - Urinary tract infection [Unknown]
  - Vaginal infection [Unknown]
  - Staphylococcal infection [Unknown]
  - Back pain [Unknown]
  - Bladder pain [Unknown]
  - Pathogen resistance [Unknown]
  - Vaginitis bacterial [Recovered/Resolved]
  - Staphylococcal infection [Unknown]
  - Urinary tract infection [Not Recovered/Not Resolved]
  - Back pain [Not Recovered/Not Resolved]
  - Bladder pain [Not Recovered/Not Resolved]
  - Drug ineffective [Not Recovered/Not Resolved]
